FAERS Safety Report 10019361 (Version 2)
Quarter: 2014Q2

REPORT INFORMATION
  Report Type: Spontaneous
  Country: RU (occurrence: RU)
  Receive Date: 20140318
  Receipt Date: 20140417
  Transmission Date: 20141212
  Serious: Yes (Death)
  Sender: FDA-Public Use
  Company Number: RU-ELI_LILLY_AND_COMPANY-RU201403003847

PATIENT
  Age: 63 Year
  Sex: Male

DRUGS (5)
  1. ALIMTA [Suspect]
     Indication: NON-SMALL CELL LUNG CANCER STAGE IV
     Dosage: 700 MG, SINGLE
     Route: 042
     Dates: start: 20130221
  2. CISPLATINUM [Suspect]
     Indication: NON-SMALL CELL LUNG CANCER STAGE IV
     Dosage: 100 MG, SINGLE
     Route: 042
     Dates: start: 20130221
  3. CYANOCOBALAMINE [Concomitant]
     Dosage: 1000 UG, UNK
     Route: 030
     Dates: start: 20130213
  4. FOLIC ACID [Concomitant]
     Dosage: 350 UG, UNK
     Dates: start: 20130213
  5. DEXAMETHASONE [Concomitant]
     Dosage: 4 MG, BID
     Dates: start: 20130220, end: 20130223

REACTIONS (2)
  - Cardiac arrest [Fatal]
  - Myocardial infarction [Fatal]
